FAERS Safety Report 20577009 (Version 1)
Quarter: 2022Q1

REPORT INFORMATION
  Report Type: Spontaneous
  Country: AU (occurrence: AU)
  Receive Date: 20220310
  Receipt Date: 20220310
  Transmission Date: 20220424
  Serious: Yes (Other)
  Sender: FDA-Public Use
  Company Number: AU-TORRENT-00000403

PATIENT
  Age: 2 Year
  Sex: Female

DRUGS (1)
  1. OLANZAPINE [Suspect]
     Active Substance: OLANZAPINE
     Indication: Product used for unknown indication
     Dosage: UNKNOWN
     Route: 065

REACTIONS (7)
  - Agitation [Unknown]
  - Delirium [Unknown]
  - Depressed level of consciousness [Unknown]
  - Heart rate increased [Unknown]
  - Miosis [Unknown]
  - Seizure [Unknown]
  - Tachycardia [Unknown]
